FAERS Safety Report 25771480 (Version 1)
Quarter: 2025Q3

REPORT INFORMATION
  Report Type: Spontaneous
  Country: US (occurrence: US)
  Receive Date: 20250908
  Receipt Date: 20250908
  Transmission Date: 20251020
  Serious: No
  Sender: DOMPE FARMACEUTICI
  Company Number: US-FARMAPROD-202504-1351

PATIENT
  Sex: Male

DRUGS (10)
  1. OXERVATE [Suspect]
     Active Substance: CENEGERMIN-BKBJ
     Indication: Neurotrophic keratopathy
     Route: 047
     Dates: start: 20250122, end: 20250319
  2. OXERVATE [Suspect]
     Active Substance: CENEGERMIN-BKBJ
     Dates: start: 20250410
  3. TYRVAYA [Concomitant]
     Active Substance: VARENICLINE TARTRATE
  4. PREDNISOLONE [Concomitant]
     Active Substance: PREDNISOLONE
  5. TIMOLOL [Concomitant]
     Active Substance: TIMOLOL
  6. PRED FORTE [Concomitant]
     Active Substance: PREDNISOLONE ACETATE
  7. DUPIXENT [Concomitant]
     Active Substance: DUPILUMAB
  8. VALTREX [Concomitant]
     Active Substance: VALACYCLOVIR HYDROCHLORIDE
  9. METOPROLOL TARTRATE [Concomitant]
     Active Substance: METOPROLOL TARTRATE
  10. LIPITOR [Concomitant]
     Active Substance: ATORVASTATIN CALCIUM

REACTIONS (2)
  - Eye swelling [Unknown]
  - Hordeolum [Unknown]
